FAERS Safety Report 10397953 (Version 1)
Quarter: 2014Q3

REPORT INFORMATION
  Report Type: Report from Study
  Country: US (occurrence: US)
  Receive Date: 20140821
  Receipt Date: 20140821
  Transmission Date: 20150326
  Serious: Yes (Death)
  Sender: FDA-Public Use
  Company Number: US-ROCHE-1452737

PATIENT

DRUGS (2)
  1. CAPECITABINE [Suspect]
     Active Substance: CAPECITABINE
     Indication: PANCREATIC CARCINOMA
     Dosage: 6-WEEK COURSE OF 1200 TO 1600 MG/M2/DAY IN TWO DIVIDED DOSES PER DAY (MEDIAN DOSE 1600 MG/M2/DAY) ON
     Route: 048
  2. CAPECITABINE [Suspect]
     Active Substance: CAPECITABINE
     Dosage: 6 TO 8 CYCLES OF CAPECITABINE 2000 TO 2500 MG/M2 ORALLY TWICE DAILY FOR 14 DAYS EVERY 3 WEEKS FOR TH
     Route: 048

REACTIONS (1)
  - Gastrointestinal haemorrhage [Fatal]
